FAERS Safety Report 16841648 (Version 1)
Quarter: 2019Q3

REPORT INFORMATION
  Report Type: Spontaneous
  Country: US (occurrence: US)
  Receive Date: 20190923
  Receipt Date: 20190923
  Transmission Date: 20191005
  Serious: No
  Sender: FDA-Public Use
  Company Number: US-ASSERTIO THERAPEUTICS, INC.-US-2019DEP000076

PATIENT
  Age: 58 Year
  Sex: Female
  Weight: 52.61 kg

DRUGS (3)
  1. GRALISE [Suspect]
     Active Substance: GABAPENTIN
     Indication: NEURALGIA
     Dosage: 900 MG, UNK
     Route: 048
     Dates: start: 2007
  2. GRALISE [Suspect]
     Active Substance: GABAPENTIN
     Dosage: 600 MG, QD
     Route: 048
     Dates: start: 2009
  3. GRALISE [Suspect]
     Active Substance: GABAPENTIN
     Dosage: 600 MG, QD
     Route: 048
     Dates: start: 2011

REACTIONS (10)
  - Hyperhidrosis [Not Recovered/Not Resolved]
  - Feeding disorder [Recovered/Resolved]
  - Insomnia [Recovered/Resolved]
  - Fear [Recovered/Resolved]
  - Nausea [Recovered/Resolved]
  - Product use in unapproved indication [Unknown]
  - Anxiety [Not Recovered/Not Resolved]
  - Product dose omission [Unknown]
  - Hot flush [Not Recovered/Not Resolved]
  - Panic attack [Recovered/Resolved with Sequelae]

NARRATIVE: CASE EVENT DATE: 2007
